FAERS Safety Report 8096527-4 (Version None)
Quarter: 2012Q1

REPORT INFORMATION
  Report Type: 
  Country: None (occurrence: None)
  Receive Date: 20120129
  Receipt Date: 20111216
  Transmission Date: 20120608
  Serious: No
  Sender: FDA-Public Use
  Company Number: US-ABBOTT-11P-163-0880908-00

PATIENT
  Age: 62 Year
  Sex: Female

DRUGS (6)
  1. IBUPROFEN [Concomitant]
     Indication: PAIN
  2. LEVOTHYROXINE SODIUM [Concomitant]
     Indication: HYPOTHYROIDISM
     Route: 048
  3. MICARDIS HCT [Concomitant]
     Indication: HYPERTENSION
     Dosage: 80/12.5MG DAILY
     Route: 048
  4. AMLODIPINE [Concomitant]
     Indication: HYPERTENSION
     Route: 048
     Dates: start: 20060101
  5. IBUPROFEN [Concomitant]
     Indication: SPINAL COLUMN STENOSIS
  6. HUMIRA [Suspect]
     Indication: PSORIASIS
     Dates: start: 20110301, end: 20111001

REACTIONS (5)
  - DEVICE MALFUNCTION [None]
  - PSORIASIS [None]
  - DRUG INEFFECTIVE [None]
  - NEEDLE ISSUE [None]
  - INCORRECT DOSE ADMINISTERED [None]
